FAERS Safety Report 8127523-6 (Version None)
Quarter: 2012Q1

REPORT INFORMATION
  Report Type: 
  Country: None (occurrence: None)
  Receive Date: 20120210
  Receipt Date: 20120203
  Transmission Date: 20120608
  Serious: Yes (Hospitalization)
  Sender: FDA-Public Use
  Company Number: IR-ROXANE LABORATORIES, INC.-2012-RO-00603RO

PATIENT
  Sex: Male
  Weight: 2 kg

DRUGS (1)
  1. METHADONE HCL [Suspect]
     Route: 064

REACTIONS (2)
  - THROMBOCYTOSIS [None]
  - DRUG WITHDRAWAL SYNDROME NEONATAL [None]
